FAERS Safety Report 16375832 (Version 11)
Quarter: 2022Q3

REPORT INFORMATION
  Report Type: Report from Study
  Country: JP (occurrence: JP)
  Receive Date: 20190531
  Receipt Date: 20220805
  Transmission Date: 20221026
  Serious: Yes (Hospitalization, Other)
  Sender: FDA-Public Use
  Company Number: JP-ONO-BJ201820488

PATIENT
  Age: 73 Year
  Sex: Female
  Weight: 38.7 kg

DRUGS (53)
  1. ETELCALCETIDE [Suspect]
     Active Substance: ETELCALCETIDE
     Indication: Hyperparathyroidism secondary
     Dosage: 5 MILLIGRAM, Q56H
     Route: 065
     Dates: start: 20180813, end: 20180828
  2. EPOETIN ALFA [Concomitant]
     Active Substance: ERYTHROPOIETIN
     Dosage: 3750 DOSAGE FORM, QWK
     Route: 065
     Dates: end: 20180619
  3. EPOETIN ALFA [Concomitant]
     Active Substance: ERYTHROPOIETIN
     Dosage: 4500 DOSAGE FORM, QWK
     Dates: start: 20180620, end: 20180903
  4. EPOETIN ALFA [Concomitant]
     Active Substance: ERYTHROPOIETIN
     Dosage: 7500 DOSAGE FORM, QWK
     Dates: start: 20180905, end: 20190622
  5. EPOETIN ALFA [Concomitant]
     Active Substance: ERYTHROPOIETIN
     Dosage: 7500 DOSAGE FORM, QWK
     Dates: start: 20190714, end: 20200103
  6. EPOETIN ALFA [Concomitant]
     Active Substance: ERYTHROPOIETIN
     Dosage: 6000 DOSAGE FORM, QWK
     Dates: start: 20200106, end: 20201203
  7. EPOETIN ALFA [Concomitant]
     Active Substance: ERYTHROPOIETIN
     Dosage: 4500 DOSAGE FORM, QWK
     Dates: start: 20201204, end: 20201221
  8. EPOETIN ALFA [Concomitant]
     Active Substance: ERYTHROPOIETIN
     Dosage: 2250 DOSAGE FORM, QWK
     Dates: start: 20201223, end: 20210107
  9. EPOETIN ALFA [Concomitant]
     Active Substance: ERYTHROPOIETIN
     Dosage: 1500 DOSAGE FORM, QWK
     Dates: start: 20210108, end: 20210716
  10. EPOETIN ALFA [Concomitant]
     Active Substance: ERYTHROPOIETIN
     Dosage: 2250 DOSAGE FORM, QWK
     Dates: start: 20210719, end: 20220211
  11. EPOETIN ALFA [Concomitant]
     Active Substance: ERYTHROPOIETIN
     Dosage: 3000 DOSAGE FORM, QWK
     Dates: start: 20220214, end: 20220325
  12. EPOETIN ALFA [Concomitant]
     Active Substance: ERYTHROPOIETIN
     Dosage: 3750 DOSAGE FORM, QWK
     Dates: start: 20220328, end: 20220617
  13. EPOETIN ALFA [Concomitant]
     Active Substance: ERYTHROPOIETIN
     Dosage: 4500 DOSAGE FORM, QWK
     Dates: start: 20220620
  14. CINACALCET HYDROCHLORIDE [Concomitant]
     Active Substance: CINACALCET HYDROCHLORIDE
     Dosage: 12.5 MG, EVERYDAY(UNK-2018/08/12)
     Route: 048
  15. CINACALCET HYDROCHLORIDE [Concomitant]
     Active Substance: CINACALCET HYDROCHLORIDE
     Dosage: 12.5 MG, EVERYDAY
     Dates: start: 20180829, end: 20190220
  16. FOSRENOL [Concomitant]
     Active Substance: LANTHANUM CARBONATE
     Dosage: 2250 MILLIGRAM
     Route: 048
     Dates: end: 20201124
  17. OXAROL [Concomitant]
     Active Substance: MAXACALCITOL
     Dosage: 15 MICROGRAM, 5 UG QW, Q2WK
     Route: 042
  18. OXAROL [Concomitant]
     Active Substance: MAXACALCITOL
     Dosage: 7.5 UG Q84H (2018/09/03-2018/10/01), 5 UG QW (2018/09/23-2018/10/01)
     Route: 042
     Dates: start: 20180903, end: 20181001
  19. OXAROL [Concomitant]
     Active Substance: MAXACALCITOL
     Dosage: 7.5 MICROGRAM, 3 TIMES/WK (7.5 UG, Q56H)
     Route: 042
     Dates: start: 20181003, end: 20181203
  20. OXAROL [Concomitant]
     Active Substance: MAXACALCITOL
     Dosage: 10 MICROGRAM, 2 TIMES/WK (10 UG, Q84H)
     Route: 042
     Dates: start: 20181205, end: 20190204
  21. OXAROL [Concomitant]
     Active Substance: MAXACALCITOL
     Dosage: 10 MICROGRAM, 3 TIMES/WK (10 UG, Q56H)
     Route: 042
     Dates: start: 20190206, end: 20190805
  22. OXAROL [Concomitant]
     Active Substance: MAXACALCITOL
     Dosage: 7.5 UG, QW
     Route: 042
     Dates: start: 20190807, end: 20190902
  23. OXAROL [Concomitant]
     Active Substance: MAXACALCITOL
     Dosage: 10 UG, Q84H
     Route: 042
     Dates: start: 20190807, end: 20190902
  24. OXAROL [Concomitant]
     Active Substance: MAXACALCITOL
     Dosage: 7.5 UG, Q84H
     Route: 042
     Dates: start: 20190904, end: 20200120
  25. OXAROL [Concomitant]
     Active Substance: MAXACALCITOL
     Dosage: 10 UG, QW
     Route: 042
     Dates: start: 20190904, end: 20200120
  26. OXAROL [Concomitant]
     Active Substance: MAXACALCITOL
     Dosage: 7.5 UG, Q56H
     Route: 042
     Dates: start: 20200122, end: 20200907
  27. OXAROL [Concomitant]
     Active Substance: MAXACALCITOL
     Dosage: 5.0 UG, QW
     Route: 042
     Dates: start: 20200909, end: 20201104
  28. OXAROL [Concomitant]
     Active Substance: MAXACALCITOL
     Dosage: 7.5 UG, Q84H
     Route: 042
     Dates: start: 20200911, end: 20201107
  29. OXAROL [Concomitant]
     Active Substance: MAXACALCITOL
     Dosage: 7.5 UG, QW
     Route: 042
     Dates: start: 20201109, end: 20201123
  30. OXAROL [Concomitant]
     Active Substance: MAXACALCITOL
     Dosage: 5.0 UG, Q84H
     Route: 042
     Dates: start: 20201111, end: 20201127
  31. OXAROL [Concomitant]
     Active Substance: MAXACALCITOL
     Dosage: 5 UG, Q56H
     Route: 042
     Dates: start: 20201130, end: 20210421
  32. OXAROL [Concomitant]
     Active Substance: MAXACALCITOL
     Dosage: 2.5 UG, Q56H
     Route: 042
     Dates: start: 20210423, end: 20210621
  33. OXAROL [Concomitant]
     Active Substance: MAXACALCITOL
     Dosage: 2.5 UG, Q84H
     Route: 042
     Dates: start: 20210623, end: 20211022
  34. OXAROL [Concomitant]
     Active Substance: MAXACALCITOL
     Dosage: 2.5 UG, QW
     Route: 042
     Dates: start: 20211025
  35. OXAROL [Concomitant]
     Active Substance: MAXACALCITOL
     Dosage: 15 UG Q84H, 5 UG QW (UNK-2018/06/18)
     Route: 042
  36. OXAROL [Concomitant]
     Active Substance: MAXACALCITOL
     Dosage: 7.5 UG, Q56H
     Dates: start: 20181003, end: 20181203
  37. OXAROL [Concomitant]
     Active Substance: MAXACALCITOL
     Dosage: 10 UG, Q84H
     Dates: start: 20181205, end: 20190204
  38. OXAROL [Concomitant]
     Active Substance: MAXACALCITOL
     Dosage: 10 UG, Q56H
     Dates: start: 20190206, end: 20190805
  39. OXAROL [Concomitant]
     Active Substance: MAXACALCITOL
     Dosage: 2.5 UG, QW
     Dates: start: 20211029, end: 20220704
  40. OXAROL [Concomitant]
     Active Substance: MAXACALCITOL
     Dosage: 5 UG, QW
     Dates: start: 20220706, end: 20220720
  41. OXAROL [Concomitant]
     Active Substance: MAXACALCITOL
     Dosage: 2.5 UG, Q84H
     Dates: start: 20220708, end: 20220718
  42. OXAROL [Concomitant]
     Active Substance: MAXACALCITOL
     Dosage: 5 UG, Q56H
     Dates: start: 20220722
  43. EVOCALCET [Concomitant]
     Active Substance: EVOCALCET
     Dosage: 1 MG, EVERYDAY
     Route: 048
     Dates: start: 20190221, end: 20210119
  44. EVOCALCET [Concomitant]
     Active Substance: EVOCALCET
     Dosage: 2 MG, EVERYDAY
     Route: 048
     Dates: start: 20210120, end: 20210413
  45. EVOCALCET [Concomitant]
     Active Substance: EVOCALCET
     Dosage: 3 MG, EVERYDAY
     Route: 048
     Dates: start: 20210414, end: 20210608
  46. EVOCALCET [Concomitant]
     Active Substance: EVOCALCET
     Dosage: 4 MG, EVERYDAY
     Route: 048
     Dates: start: 20210609, end: 20210907
  47. EVOCALCET [Concomitant]
     Active Substance: EVOCALCET
     Dosage: 5 MG, EVERYDAY
     Route: 048
     Dates: start: 20210908, end: 20211109
  48. EVOCALCET [Concomitant]
     Active Substance: EVOCALCET
     Dosage: 6 MG, EVERYDAY
     Dates: start: 20211110, end: 20211207
  49. EVOCALCET [Concomitant]
     Active Substance: EVOCALCET
     Dosage: 8 MG, EVERYDAY
     Dates: start: 20211208, end: 20220315
  50. EVOCALCET [Concomitant]
     Active Substance: EVOCALCET
     Dosage: 9 MG, EVERYDAY
     Dates: start: 20220316, end: 20220412
  51. EVOCALCET [Concomitant]
     Active Substance: EVOCALCET
     Dosage: 10 MG, EVERYDAY
     Dates: start: 20220413, end: 20220510
  52. EVOCALCET [Concomitant]
     Active Substance: EVOCALCET
     Dosage: 12 MG, EVERYDAY
     Dates: start: 20220511, end: 20220607
  53. FERRIC CITRATE ANHYDROUS [Concomitant]
     Active Substance: FERRIC CITRATE ANHYDROUS
     Dosage: 1500 MG, EVERYDAY
     Route: 048
     Dates: start: 20201125, end: 20211207

REACTIONS (18)
  - Diverticulitis [Recovering/Resolving]
  - Diverticulum intestinal haemorrhagic [Recovered/Resolved]
  - Shunt stenosis [Recovered/Resolved]
  - Shunt stenosis [Recovered/Resolved]
  - Shunt stenosis [Recovered/Resolved]
  - Shunt occlusion [Recovering/Resolving]
  - Cardiac failure [Recovering/Resolving]
  - Cardiac failure [Recovering/Resolving]
  - Shunt occlusion [Recovered/Resolved]
  - Diarrhoea [Recovered/Resolved]
  - Shunt stenosis [Recovered/Resolved]
  - Shunt stenosis [Recovered/Resolved]
  - Shunt stenosis [Recovered/Resolved]
  - Shunt stenosis [Recovered/Resolved]
  - Shunt stenosis [Recovered/Resolved]
  - Shunt stenosis [Recovered/Resolved]
  - Shunt stenosis [Recovered/Resolved]
  - Shunt stenosis [Recovered/Resolved]

NARRATIVE: CASE EVENT DATE: 20180820
